FAERS Safety Report 5720132-5 (Version None)
Quarter: 2008Q2

REPORT INFORMATION
  Report Type: 
  Country: None (occurrence: None)
  Receive Date: 20080428
  Receipt Date: 20071227
  Transmission Date: 20081010
  Serious: No
  Sender: FDA-Public Use
  Company Number: US-AMGEN-US231045

PATIENT
  Sex: Female
  Weight: 45.4 kg

DRUGS (8)
  1. SENSIPAR [Suspect]
     Indication: HYPERPARATHYROIDISM SECONDARY
     Route: 048
     Dates: start: 20070105, end: 20071130
  2. CLONIDINE HCL [Concomitant]
     Route: 065
     Dates: start: 20071011
  3. NEXIUM [Concomitant]
     Route: 065
     Dates: start: 20070102
  4. NIFEDIPINE [Concomitant]
     Route: 065
     Dates: start: 20051208
  5. PRILOSEC [Concomitant]
     Route: 065
     Dates: start: 20060502
  6. RENAGEL [Concomitant]
     Route: 065
     Dates: start: 20070709
  7. RENAX [Concomitant]
     Route: 065
     Dates: start: 20070501
  8. TYLENOL [Concomitant]
     Route: 065
     Dates: start: 20060602

REACTIONS (2)
  - RASH [None]
  - RASH ERYTHEMATOUS [None]
